FAERS Safety Report 12318396 (Version 1)
Quarter: 2016Q2

REPORT INFORMATION
  Report Type: Spontaneous
  Country: US (occurrence: US)
  Receive Date: 20160429
  Receipt Date: 20160429
  Transmission Date: 20160815
  Serious: Yes (Hospitalization)
  Sender: FDA-Public Use
  Company Number: US-FRI-1000084362

PATIENT
  Age: 58 Year
  Sex: Male
  Weight: 98 kg

DRUGS (10)
  1. CLONAZEPAM. [Concomitant]
     Active Substance: CLONAZEPAM
     Dosage: 1 MG
  2. ATORVASTATIN [Concomitant]
     Active Substance: ATORVASTATIN
     Dosage: 40 MG
  3. AMITIZA [Concomitant]
     Active Substance: LUBIPROSTONE
     Dates: end: 201401
  4. LINZESS [Suspect]
     Active Substance: LINACLOTIDE
     Indication: CONSTIPATION
     Dosage: 145 MICROGRAM
     Route: 048
     Dates: start: 201401, end: 201401
  5. BUPROPION HYDROCHLORIDE XL [Concomitant]
     Active Substance: BUPROPION HYDROCHLORIDE
     Dosage: 450 MG
  6. MIRALAX [Concomitant]
     Active Substance: POLYETHYLENE GLYCOL 3350
     Dates: end: 201401
  7. CARVEDILOL. [Concomitant]
     Active Substance: CARVEDILOL
     Dosage: 6.25 MG
  8. CELECOXIB. [Concomitant]
     Active Substance: CELECOXIB
     Dosage: 400 MG
  9. ESCITALOPRAM [Concomitant]
     Active Substance: ESCITALOPRAM OXALATE
     Dosage: 20 MG
  10. ISOSORBIDE MONONITRATE. [Concomitant]
     Active Substance: ISOSORBIDE MONONITRATE
     Dosage: 30 MG

REACTIONS (7)
  - Gait disturbance [Unknown]
  - Diarrhoea [Recovering/Resolving]
  - Intentional product misuse [Unknown]
  - Dizziness [Unknown]
  - Abdominal pain [Unknown]
  - Hyperhidrosis [Unknown]
  - Fluid replacement [Unknown]

NARRATIVE: CASE EVENT DATE: 201401
